FAERS Safety Report 13345472 (Version 6)
Quarter: 2017Q3

REPORT INFORMATION
  Report Type: Spontaneous
  Country: JP (occurrence: JP)
  Receive Date: 20170317
  Receipt Date: 20170725
  Transmission Date: 20171127
  Serious: Yes (Hospitalization, Other)
  Sender: FDA-Public Use
  Company Number: JP-ASTELLAS-2017JP004541AA

PATIENT
  Age: 75 Year
  Sex: Male
  Weight: 52 kg

DRUGS (23)
  1. ANTEBATE [Concomitant]
     Active Substance: BETAMETHASONE DIPROPIONATE
     Indication: URTICARIA
     Dosage: UNK UNK, UNKNOWN FREQ.
     Route: 065
     Dates: start: 20170211
  2. ALESION [Concomitant]
     Active Substance: EPINASTINE HYDROCHLORIDE
     Indication: STEVENS-JOHNSON SYNDROME
     Route: 065
     Dates: start: 20170215, end: 20170221
  3. FEXOFENADINE [Concomitant]
     Active Substance: FEXOFENADINE\FEXOFENADINE HYDROCHLORIDE
     Indication: URTICARIA
     Route: 065
     Dates: start: 20170211
  4. ZOMETA [Suspect]
     Active Substance: ZOLEDRONIC ACID
     Indication: METASTASES TO BONE
     Route: 041
     Dates: start: 20170208, end: 20170208
  5. TAMSULOSIN [Concomitant]
     Active Substance: TAMSULOSIN
     Indication: BENIGN PROSTATIC HYPERPLASIA
     Dosage: 0.2 MG, ONCE DAILY
     Route: 048
     Dates: start: 20140404
  6. ASPARA-CA [Concomitant]
     Active Substance: CALCIUM ASPARTATE
     Indication: PROPHYLAXIS
     Route: 048
     Dates: start: 20170208, end: 20170308
  7. PREDNISOLONE. [Concomitant]
     Active Substance: PREDNISOLONE
     Indication: STEVENS-JOHNSON SYNDROME
     Route: 065
     Dates: start: 20170215
  8. OXINORM                            /00045603/ [Concomitant]
     Active Substance: OXYCODONE HYDROCHLORIDE
     Indication: BACK PAIN
     Dosage: UNK UNK, AS NEEDED
     Route: 048
     Dates: start: 20170113, end: 20170306
  9. OXYCONTIN [Concomitant]
     Active Substance: OXYCODONE HYDROCHLORIDE
     Indication: CANCER PAIN
  10. MAGNESIUM OXIDE. [Concomitant]
     Active Substance: MAGNESIUM OXIDE
     Indication: CONSTIPATION PROPHYLAXIS
     Route: 048
     Dates: start: 20161216, end: 20170306
  11. FLUMETHOLON [Concomitant]
     Active Substance: FLUOROMETHOLONE
     Indication: STEVENS-JOHNSON SYNDROME
     Dosage: UNK UNK, UNKNOWN FREQ.
     Route: 065
     Dates: start: 20170215
  12. OXYCONTIN [Concomitant]
     Active Substance: OXYCODONE HYDROCHLORIDE
     Indication: ARTHRALGIA
     Route: 048
     Dates: start: 20161118, end: 20170306
  13. LOXOPROFEN NA [Concomitant]
     Active Substance: LOXOPROFEN SODIUM
     Indication: BACK PAIN
     Route: 062
     Dates: start: 20161111, end: 20170306
  14. OXINORM                            /00045603/ [Concomitant]
     Active Substance: OXYCODONE HYDROCHLORIDE
     Indication: CANCER PAIN
  15. ANTEBATE [Concomitant]
     Active Substance: BETAMETHASONE DIPROPIONATE
     Indication: STEVENS-JOHNSON SYNDROME
     Dosage: UNK UNK, UNKNOWN FREQ.
     Route: 065
     Dates: start: 20170215
  16. GONAX [Concomitant]
     Active Substance: DEGARELIX
     Indication: PROSTATE CANCER
     Route: 058
     Dates: start: 20160826
  17. RINDERON                           /00008501/ [Concomitant]
     Active Substance: BETAMETHASONE
     Indication: URTICARIA
     Dosage: UNK UNK, UNKNOWN FREQ.
     Route: 065
     Dates: start: 20170211
  18. AZUNOL                             /00317302/ [Concomitant]
     Indication: STEVENS-JOHNSON SYNDROME
     Dosage: UNK UNK, UNKNOWN FREQ.
     Route: 065
     Dates: start: 20170215
  19. OLOPATADINE                        /01362802/ [Concomitant]
     Indication: STEVENS-JOHNSON SYNDROME
     Route: 065
     Dates: start: 20170222
  20. XTANDI [Suspect]
     Active Substance: ENZALUTAMIDE
     Indication: HORMONE-REFRACTORY PROSTATE CANCER
     Route: 048
     Dates: start: 20161216, end: 20170214
  21. POSTERISAN                         /00028601/ [Concomitant]
     Indication: PROCTALGIA
     Route: 054
     Dates: start: 20170208, end: 20170308
  22. ALFACALCIDOL [Concomitant]
     Active Substance: ALFACALCIDOL
     Indication: PROPHYLAXIS
     Dosage: 0.25 ?G, ONCE DAILY
     Route: 048
     Dates: start: 20170208, end: 20170308
  23. NEO-MINOPHAGEN C [Concomitant]
     Active Substance: AMMONIUM GLYCYRRHIZATE
     Indication: URTICARIA
     Dosage: UNK UNK, UNKNOWN FREQ.
     Route: 065
     Dates: start: 20170211

REACTIONS (3)
  - Stevens-Johnson syndrome [Recovered/Resolved]
  - Malaise [Recovered/Resolved]
  - Intentional underdose [Unknown]

NARRATIVE: CASE EVENT DATE: 20161216
